FAERS Safety Report 9686225 (Version 2)
Quarter: 2014Q2

REPORT INFORMATION
  Report Type: Spontaneous
  Country: SI (occurrence: SI)
  Receive Date: 20131113
  Receipt Date: 20140501
  Transmission Date: 20141212
  Serious: Yes (Other)
  Sender: FDA-Public Use
  Company Number: PHHY2013SI127644

PATIENT
  Age: 83 Year
  Sex: Female

DRUGS (3)
  1. TULIP [Suspect]
     Dosage: 1 DF, IN EVENING
     Route: 048
  2. OLIVIN [Concomitant]
  3. CONCOR [Concomitant]

REACTIONS (3)
  - Choking [Unknown]
  - Pruritus [Unknown]
  - Myalgia [Unknown]
